FAERS Safety Report 24548395 (Version 3)
Quarter: 2025Q3

REPORT INFORMATION
  Report Type: Spontaneous
  Country: US (occurrence: US)
  Receive Date: 20241025
  Receipt Date: 20250803
  Transmission Date: 20251021
  Serious: Yes (Hospitalization, Other)
  Sender: ALEXION PHARMACEUTICALS
  Company Number: US-AstraZeneca-CH-00729878AM

PATIENT
  Age: 74 Year
  Sex: Female

DRUGS (1)
  1. TRUQAP [Suspect]
     Active Substance: CAPIVASERTIB

REACTIONS (2)
  - Diabetic ketoacidosis [Recovered/Resolved]
  - Insulin resistance [Unknown]

NARRATIVE: CASE EVENT DATE: 20241017
